FAERS Safety Report 14324766 (Version 1)
Quarter: 2017Q4

REPORT INFORMATION
  Report Type: Spontaneous
  Country: US (occurrence: US)
  Receive Date: 20171222
  Receipt Date: 20171222
  Transmission Date: 20180321
  Serious: Yes (Hospitalization)
  Sender: FDA-Public Use
  Company Number: None

PATIENT
  Age: 64 Year
  Sex: Female
  Weight: 55.7 kg

DRUGS (1)
  1. ATEZOLIZUMAB. [Suspect]
     Active Substance: ATEZOLIZUMAB
     Indication: LARGE CELL LUNG CANCER
     Dates: start: 20170727, end: 20171019

REACTIONS (3)
  - Interstitial lung disease [None]
  - Metastases to bone [None]
  - Disease progression [None]

NARRATIVE: CASE EVENT DATE: 20171027
